FAERS Safety Report 19742368 (Version 2)
Quarter: 2021Q3

REPORT INFORMATION
  Report Type: Spontaneous
  Country: IT (occurrence: IT)
  Receive Date: 20210824
  Receipt Date: 20210831
  Transmission Date: 20211014
  Serious: Yes (Other)
  Sender: FDA-Public Use
  Company Number: IT-MYLANLABS-2021M1054269

PATIENT
  Age: 39 Year
  Sex: Male

DRUGS (16)
  1. LAMIVUDINE. [Suspect]
     Active Substance: LAMIVUDINE
     Indication: HIV INFECTION
     Dosage: UNK
  2. DARUNAVIR W/RITONAVIR [Suspect]
     Active Substance: DARUNAVIR\RITONAVIR
     Dosage: UNK UNK, QD
  3. ZIDOVUDINE. [Suspect]
     Active Substance: ZIDOVUDINE
     Dosage: UNK
  4. RALTEGRAVIR. [Concomitant]
     Active Substance: RALTEGRAVIR
     Indication: HIV INFECTION
     Dosage: UNK
  5. LAMIVUDINE. [Suspect]
     Active Substance: LAMIVUDINE
     Dosage: UNK
  6. EMTRICITABINE [Suspect]
     Active Substance: EMTRICITABINE
     Indication: HIV INFECTION
     Dosage: UNK
  7. DARUNAVIR [Suspect]
     Active Substance: DARUNAVIR
     Indication: PRODUCT USED FOR UNKNOWN INDICATION
     Dosage: UNK
  8. RITONAVIR. [Suspect]
     Active Substance: RITONAVIR
     Indication: HIV INFECTION
     Dosage: UNK
  9. DARUNAVIR W/RITONAVIR [Suspect]
     Active Substance: DARUNAVIR\RITONAVIR
     Dosage: UNK UNK, QD
  10. ZIDOVUDINE. [Suspect]
     Active Substance: ZIDOVUDINE
     Indication: HIV INFECTION
     Dosage: UNK
  11. MARAVIROC [Concomitant]
     Active Substance: MARAVIROC
     Indication: HIV INFECTION
     Dosage: UNK
  12. TENOFOVIR DISOPROXIL [Suspect]
     Active Substance: TENOFOVIR DISOPROXIL
     Indication: HIV INFECTION
     Dosage: UNK
  13. ABACAVIR. [Suspect]
     Active Substance: ABACAVIR
     Indication: HIV INFECTION
     Dosage: UNK
  14. DOLUTEGRAVIR [Concomitant]
     Active Substance: DOLUTEGRAVIR
     Indication: HIV INFECTION
     Dosage: UNK, Q2W
  15. LAMIVUDINE. [Suspect]
     Active Substance: LAMIVUDINE
     Dosage: DURATION OF DRUG ADMINISTRATION: 10 WEEKS
  16. DARUNAVIR W/RITONAVIR [Suspect]
     Active Substance: DARUNAVIR\RITONAVIR
     Indication: HIV INFECTION
     Dosage: UNK UNK, QD

REACTIONS (13)
  - Disease recurrence [Recovered/Resolved]
  - Viral mutation identified [Unknown]
  - Cognitive disorder [Recovered/Resolved]
  - Headache [Recovered/Resolved]
  - CSF HIV escape syndrome [Recovering/Resolving]
  - Cerebral disorder [Recovered/Resolved]
  - Brain oedema [Recovered/Resolved]
  - Atrophy [Recovered/Resolved]
  - Nervous system disorder [Recovered/Resolved]
  - Peripheral venous disease [Recovered/Resolved]
  - Pathogen resistance [Unknown]
  - White matter lesion [Recovered/Resolved]
  - Virologic failure [Recovered/Resolved]
